FAERS Safety Report 6643042-8 (Version None)
Quarter: 2010Q1

REPORT INFORMATION
  Report Type: 
  Country: None (occurrence: None)
  Receive Date: 20100319
  Receipt Date: 20100315
  Transmission Date: 20100710
  Serious: Yes (Death)
  Sender: FDA-Public Use
  Company Number: D0066402A

PATIENT
  Sex: Male

DRUGS (2)
  1. NELARABINE [Suspect]
     Indication: RECURRENT CANCER
     Route: 042
  2. IFOSFAMID [Suspect]
     Indication: RECURRENT CANCER
     Route: 042

REACTIONS (3)
  - GUILLAIN-BARRE SYNDROME [None]
  - PARAPARESIS [None]
  - URINARY INCONTINENCE [None]
